FAERS Safety Report 7326995-4 (Version None)
Quarter: 2011Q1

REPORT INFORMATION
  Report Type: 
  Country: None (occurrence: None)
  Receive Date: 20110302
  Receipt Date: 20110216
  Transmission Date: 20110831
  Serious: Yes (Death, Hospitalization, Other)
  Sender: FDA-Public Use
  Company Number: US-CELGENEUS-163-21880-10112624

PATIENT
  Sex: Female

DRUGS (14)
  1. MULTI-VITAMINS [Concomitant]
     Dosage: 1 TABLET
     Route: 048
  2. ZAROXOLYN [Concomitant]
     Dosage: 2.5 MILLIGRAM
     Route: 065
  3. MELATONIN [Concomitant]
     Dosage: 3 MILLIGRAM
     Route: 065
  4. ARANESP [Concomitant]
     Dosage: 500 MICROGRAM
     Route: 065
  5. DIGOXIN [Concomitant]
     Dosage: .125 MILLIGRAM
     Route: 065
  6. ZINC SULFATE [Concomitant]
     Dosage: 50 MILLIGRAM
     Route: 065
  7. REVLIMID [Suspect]
     Dosage: 5 MILLIGRAM
     Route: 048
     Dates: start: 20100730, end: 20101116
  8. LYRICA [Concomitant]
     Dosage: 50 MILLIGRAM
     Route: 065
  9. LASIX [Concomitant]
     Dosage: 80 MILLIGRAM
     Route: 065
  10. PROPRANOLOL [Concomitant]
     Dosage: 10 MILLIGRAM
     Route: 065
  11. ASCORBIC ACID [Concomitant]
     Dosage: 500 MILLIGRAM
     Route: 065
  12. NASONEX [Concomitant]
     Dosage: 2 SPRAYS
     Route: 045
  13. COUMADIN [Concomitant]
     Indication: ATRIAL FIBRILLATION
     Dosage: 3.5 MILLIGRAM
     Route: 048
     Dates: end: 20101101
  14. OMEPRAZOLE [Concomitant]
     Dosage: 20 MILLIGRAM
     Route: 065

REACTIONS (4)
  - DECUBITUS ULCER [None]
  - MYOCARDIAL INFARCTION [None]
  - STAPHYLOCOCCAL SEPSIS [None]
  - HYPOKALAEMIA [None]
